FAERS Safety Report 6818978-5 (Version None)
Quarter: 2010Q3

REPORT INFORMATION
  Report Type: 
  Country: None (occurrence: None)
  Receive Date: 20100707
  Receipt Date: 20100706
  Transmission Date: 20110219
  Serious: Yes (Life-Threatening)
  Sender: FDA-Public Use
  Company Number: PL-MPIJNJ-2010-03348

PATIENT
  Sex: Male
  Weight: 59 kg

DRUGS (2)
  1. VELCADE [Suspect]
     Indication: MANTLE CELL LYMPHOMA
     Dosage: UNK
     Dates: start: 20100701, end: 20100705
  2. PREDNISONE [Suspect]
     Indication: MANTLE CELL LYMPHOMA
     Dosage: 165 MG, UNK
     Route: 048
     Dates: start: 20100701, end: 20100702

REACTIONS (1)
  - GASTROINTESTINAL HAEMORRHAGE [None]
